FAERS Safety Report 9550600 (Version 1)
Quarter: 2013Q3

REPORT INFORMATION
  Report Type: Spontaneous
  Country: US (occurrence: US)
  Receive Date: 20130924
  Receipt Date: 20130924
  Transmission Date: 20140515
  Serious: No
  Sender: FDA-Public Use
  Company Number: US-SANOFI-AVENTIS-2012SA089052

PATIENT
  Age: 52 Year
  Sex: Female

DRUGS (8)
  1. AUBAGIO [Suspect]
     Indication: RELAPSING-REMITTING MULTIPLE SCLEROSIS
     Route: 048
     Dates: start: 20121107
  2. AUBAGIO [Suspect]
     Indication: RELAPSING-REMITTING MULTIPLE SCLEROSIS
     Dosage: TAKEN FROM- 16 NOVEMBER
     Route: 048
  3. AUBAGIO [Suspect]
     Indication: RELAPSING-REMITTING MULTIPLE SCLEROSIS
     Route: 048
     Dates: start: 201211
  4. AMLODIPINE [Concomitant]
     Indication: BLOOD PRESSURE
     Dates: start: 20121030
  5. TRAMADOL [Concomitant]
     Indication: FIBROMYALGIA
  6. NAPROXEN [Concomitant]
     Indication: PAIN
  7. ASPIRIN [Concomitant]
  8. MAGNESIUM [Concomitant]

REACTIONS (23)
  - Blood pressure decreased [Recovered/Resolved]
  - Heart rate increased [Recovered/Resolved]
  - Palpitations [Recovered/Resolved]
  - Dyspnoea [Recovered/Resolved]
  - Band sensation [Not Recovered/Not Resolved]
  - Nasopharyngitis [Unknown]
  - Rhinorrhoea [Unknown]
  - Oropharyngeal pain [Unknown]
  - Epistaxis [Unknown]
  - Pain of skin [Unknown]
  - Visual acuity reduced [Not Recovered/Not Resolved]
  - Balance disorder [Not Recovered/Not Resolved]
  - Back pain [Recovering/Resolving]
  - Pruritus [Unknown]
  - Pain in extremity [Not Recovered/Not Resolved]
  - Blood pressure increased [Recovered/Resolved]
  - Fatigue [Recovered/Resolved]
  - Neuropathy peripheral [Not Recovered/Not Resolved]
  - Condition aggravated [Not Recovered/Not Resolved]
  - Alopecia [Unknown]
  - Paraesthesia [Unknown]
  - Headache [Not Recovered/Not Resolved]
  - Drug dose omission [Unknown]
